FAERS Safety Report 9756624 (Version 2)
Quarter: 2013Q4

REPORT INFORMATION
  Report Type: Spontaneous
  Country: US (occurrence: US)
  Receive Date: 20131213
  Receipt Date: 20131213
  Transmission Date: 20140711
  Serious: Yes (Death, Disabling)
  Sender: FDA-Public Use
  Company Number: US-GE HEALTHCARE MEDICAL DIAGNOSTICS-OSCN-PR-0806S-0397

PATIENT
  Age: 46 Year
  Sex: Female

DRUGS (6)
  1. OMNISCAN [Suspect]
     Indication: TRANSPLANT FAILURE
     Dates: start: 20031104, end: 20031104
  2. OMNISCAN [Suspect]
     Dates: start: 20031105, end: 20031105
  3. OMNISCAN [Suspect]
     Dates: start: 20031105, end: 20031105
  4. OMNISCAN [Suspect]
     Dates: start: 20031106, end: 20031106
  5. OMNISCAN [Suspect]
     Dates: start: 20031111, end: 20031111
  6. ERYTHROPOETIN [Concomitant]

REACTIONS (1)
  - Nephrogenic systemic fibrosis [Fatal]
